FAERS Safety Report 12210735 (Version 1)
Quarter: 2016Q1

REPORT INFORMATION
  Report Type: Spontaneous
  Country: US (occurrence: US)
  Receive Date: 20160325
  Receipt Date: 20160325
  Transmission Date: 20160526
  Serious: Yes (Other)
  Sender: FDA-Public Use
  Company Number: ADR-2015-00969

PATIENT
  Age: 57 Year
  Sex: Male

DRUGS (11)
  1. FENTANYL. [Suspect]
     Active Substance: FENTANYL
     Dosage: 1352.0 MCG/DAY
     Route: 037
  2. BACLOFEN. [Suspect]
     Active Substance: BACLOFEN
     Dosage: 33.80 MCG/DAY
     Route: 037
  3. PRILOSEC [Suspect]
     Active Substance: OMEPRAZOLE MAGNESIUM
  4. OXYCODONE [Suspect]
     Active Substance: OXYCODONE
  5. VALIUM [Suspect]
     Active Substance: DIAZEPAM
  6. AMBIEN [Suspect]
     Active Substance: ZOLPIDEM TARTRATE
  7. FENTANYL SPRAY [Suspect]
     Active Substance: FENTANYL
  8. DILAUDID [Suspect]
     Active Substance: HYDROMORPHONE HYDROCHLORIDE
     Dosage: 15.773 MG/DAY
     Route: 037
  9. NAPROXEN. [Suspect]
     Active Substance: NAPROXEN
  10. FENTANYL FILM [Suspect]
     Active Substance: FENTANYL
  11. LIPITOR [Suspect]
     Active Substance: ATORVASTATIN CALCIUM

REACTIONS (4)
  - Pain [None]
  - Drug withdrawal syndrome [None]
  - No therapeutic response [None]
  - Malaise [None]
